FAERS Safety Report 21775681 (Version 1)
Quarter: 2022Q4

REPORT INFORMATION
  Report Type: Spontaneous
  Country: US (occurrence: US)
  Receive Date: 20221226
  Receipt Date: 20221226
  Transmission Date: 20230113
  Serious: No
  Sender: FDA-Public Use
  Company Number: US-Accord-270561

PATIENT
  Sex: Male
  Weight: 65.77 kg

DRUGS (3)
  1. BUPROPION HYDROCHLORIDE [Suspect]
     Active Substance: BUPROPION HYDROCHLORIDE
     Indication: Depression
     Dosage: EXTENDED-RELEASE TABLETS, ONCE DAY
     Route: 048
  2. BUPROPION [Concomitant]
     Active Substance: BUPROPION
     Dosage: EXTENDED-RELEASE TABLETS STRENGTH: 150MG, ONCE A DAY
  3. SERTRALINE [Concomitant]
     Active Substance: SERTRALINE HYDROCHLORIDE
     Dosage: ONCE A DAY
     Route: 048

REACTIONS (2)
  - Drug effect less than expected [Unknown]
  - Product odour abnormal [Unknown]
